FAERS Safety Report 5583161-0 (Version None)
Quarter: 2008Q1

REPORT INFORMATION
  Report Type: 
  Country: None (occurrence: None)
  Receive Date: 20080103
  Receipt Date: 20080103
  Transmission Date: 20080703
  Serious: Yes (Hospitalization)
  Sender: FDA-Public Use
  Company Number: None

PATIENT
  Age: 75 Year
  Sex: Female

DRUGS (4)
  1. WARFARIN SODIUM [Suspect]
     Indication: FRACTURE TREATMENT
     Dosage: 2MG DAILY PO
     Route: 048
  2. WARFARIN SODIUM [Suspect]
     Indication: THROMBOSIS PROPHYLAXIS
     Dosage: 2MG DAILY PO
     Route: 048
  3. HEPARIN [Suspect]
     Indication: FRACTURE TREATMENT
     Dosage: 5000 UNITS Q8HRS SQ
     Route: 058
  4. HEPARIN [Suspect]
     Indication: THROMBOSIS PROPHYLAXIS
     Dosage: 5000 UNITS Q8HRS SQ
     Route: 058

REACTIONS (4)
  - ANAEMIA [None]
  - HYPOTENSION [None]
  - INCISION SITE HAEMORRHAGE [None]
  - INTERNATIONAL NORMALISED RATIO DECREASED [None]
